FAERS Safety Report 20224264 (Version 2)
Quarter: 2022Q1

REPORT INFORMATION
  Report Type: Report from Study
  Country: CN (occurrence: CN)
  Receive Date: 20211223
  Receipt Date: 20220113
  Transmission Date: 20220424
  Serious: Yes (Hospitalization)
  Sender: FDA-Public Use
  Company Number: CN-PFIZER INC-202101784738

PATIENT
  Age: 74 Year
  Sex: Male
  Weight: 67 kg

DRUGS (10)
  1. PACLITAXEL [Suspect]
     Active Substance: PACLITAXEL
     Indication: Squamous cell carcinoma of lung
     Dosage: 320 MG, 1X/3 WEEKS
     Route: 041
     Dates: start: 20210311, end: 20210311
  2. PACLITAXEL [Suspect]
     Active Substance: PACLITAXEL
     Dosage: 317 MG,1X/3 WEEKS
     Route: 041
     Dates: start: 20210401, end: 20210401
  3. PACLITAXEL [Suspect]
     Active Substance: PACLITAXEL
     Dosage: 320 MG, 1X/3 WEEKS
     Route: 041
     Dates: start: 20210422, end: 20210422
  4. PACLITAXEL [Suspect]
     Active Substance: PACLITAXEL
     Dosage: 312 MG, 1X/3 WEEKS
     Route: 041
     Dates: start: 20210513, end: 20210513
  5. INVESTIGATIONAL PRODUCT [Suspect]
     Active Substance: INVESTIGATIONAL PRODUCT
     Indication: Squamous cell carcinoma of lung
     Dosage: UNK
     Dates: start: 20210310, end: 20210512
  6. INVESTIGATIONAL PRODUCT [Suspect]
     Active Substance: INVESTIGATIONAL PRODUCT
     Dosage: UNK
     Dates: start: 20210603, end: 20210826
  7. CARBOPLATIN [Suspect]
     Active Substance: CARBOPLATIN
     Indication: Squamous cell carcinoma of lung
     Dosage: 450 MG, 1X/3 WEEKS
     Route: 041
     Dates: start: 20210311, end: 20210311
  8. CARBOPLATIN [Suspect]
     Active Substance: CARBOPLATIN
     Dosage: 500 MG, 1X/3 WEEKS
     Route: 041
     Dates: start: 20210401, end: 20210401
  9. CARBOPLATIN [Suspect]
     Active Substance: CARBOPLATIN
     Dosage: 450 MG, 1X/3 WEEKS
     Route: 041
     Dates: start: 20210422, end: 20210422
  10. CARBOPLATIN [Suspect]
     Active Substance: CARBOPLATIN
     Dosage: 450 MG, 1X/3 WEEKS
     Route: 041
     Dates: start: 20210513, end: 20210513

REACTIONS (1)
  - Herpes zoster [Recovered/Resolved]

NARRATIVE: CASE EVENT DATE: 20211127
